FAERS Safety Report 24531260 (Version 1)
Quarter: 2024Q4

REPORT INFORMATION
  Report Type: Report from Study
  Country: US (occurrence: US)
  Receive Date: 20241022
  Receipt Date: 20241022
  Transmission Date: 20250115
  Serious: Yes (Hospitalization)
  Sender: JAZZ
  Company Number: US-JAZZ PHARMACEUTICALS-2024-US-018622

PATIENT
  Sex: Male
  Weight: 16.8 kg

DRUGS (2)
  1. EPIDIOLEX [Suspect]
     Active Substance: CANNABIDIOL
     Indication: Product used for unknown indication
     Dosage: 1 MILLILITER, VIA G-TUBE
  2. ONFI [Concomitant]
     Active Substance: CLOBAZAM

REACTIONS (1)
  - Hospitalisation [Unknown]
